FAERS Safety Report 7482942-6 (Version None)
Quarter: 2011Q2

REPORT INFORMATION
  Report Type: 
  Country: None (occurrence: None)
  Receive Date: 20110516
  Receipt Date: 20110509
  Transmission Date: 20111010
  Serious: Yes (Other)
  Sender: FDA-Public Use
  Company Number: CA-PFIZER INC-2011044424

PATIENT
  Age: 24 Year
  Sex: Female

DRUGS (5)
  1. SEROQUEL [Suspect]
  2. CELEXA [Concomitant]
     Dosage: UNK
  3. ZIPRASIDONE HCL [Suspect]
     Dosage: 40 MG, UNK
     Dates: start: 20110201, end: 20110101
  4. RITALIN [Concomitant]
     Dosage: UNK
  5. ATIVAN [Concomitant]
     Dosage: UNK

REACTIONS (9)
  - CHILLS [None]
  - DRUG WITHDRAWAL SYNDROME [None]
  - HALLUCINATION [None]
  - MUSCLE SPASMS [None]
  - DIARRHOEA [None]
  - VOMITING [None]
  - RASH [None]
  - FEELING ABNORMAL [None]
  - SWELLING [None]
